FAERS Safety Report 6370465-7 (Version None)
Quarter: 2009Q3

REPORT INFORMATION
  Report Type: 
  Country: None (occurrence: None)
  Receive Date: 20090923
  Receipt Date: 20090921
  Transmission Date: 20100115
  Serious: Yes (Other)
  Sender: FDA-Public Use
  Company Number: DE-PFIZER INC-2009251144

PATIENT

DRUGS (1)
  1. CLINDAMYCIN HCL [Suspect]

REACTIONS (1)
  - HYPERSENSITIVITY [None]
